FAERS Safety Report 25625727 (Version 1)
Quarter: 2025Q3

REPORT INFORMATION
  Report Type: Other
  Country: TR (occurrence: TR)
  Receive Date: 20250731
  Receipt Date: 20250731
  Transmission Date: 20251021
  Serious: Yes (Other)
  Sender: ANI
  Company Number: TR-ANIPHARMA-023862

PATIENT
  Age: 5 Year

DRUGS (2)
  1. IBUPROFEN [Suspect]
     Active Substance: IBUPROFEN
     Indication: Product used for unknown indication
  2. DIPYRONE [Concomitant]
     Active Substance: DIPYRONE
     Indication: Product used for unknown indication

REACTIONS (3)
  - Urticaria [Unknown]
  - Cross sensitivity reaction [Unknown]
  - Angioedema [Unknown]
